FAERS Safety Report 6372235-2 (Version None)
Quarter: 2009Q3

REPORT INFORMATION
  Report Type: 
  Country: None (occurrence: None)
  Receive Date: 20090924
  Receipt Date: 20090916
  Transmission Date: 20100115
  Serious: Yes (Death, Hospitalization, Other)
  Sender: FDA-Public Use
  Company Number: US-BIOGENIDEC-2005BI000907

PATIENT
  Age: 50 Year
  Sex: Female

DRUGS (2)
  1. AVONEX [Suspect]
     Indication: MULTIPLE SCLEROSIS
     Route: 030
     Dates: end: 20060301
  2. MEDICATIONS [Concomitant]

REACTIONS (11)
  - ANXIETY [None]
  - CENTRAL LINE INFECTION [None]
  - ENTEROCOCCAL BACTERAEMIA [None]
  - HYPOACUSIS [None]
  - IATROGENIC INJURY [None]
  - METASTATIC SALIVARY GLAND CANCER [None]
  - POST PROCEDURAL COMPLICATION [None]
  - POST PROCEDURAL HAEMORRHAGE [None]
  - PSEUDOMONAL BACTERAEMIA [None]
  - RESPIRATORY FAILURE [None]
  - SALIVARY GLAND CANCER RECURRENT [None]
